FAERS Safety Report 14947666 (Version 1)
Quarter: 2018Q2

REPORT INFORMATION
  Report Type: Spontaneous
  Country: BR (occurrence: BR)
  Receive Date: 20180529
  Receipt Date: 20180529
  Transmission Date: 20180711
  Serious: Yes (Hospitalization)
  Sender: FDA-Public Use
  Company Number: BR-PFIZER INC-2018200509

PATIENT
  Age: 46 Year
  Sex: Female

DRUGS (6)
  1. CLONAZEPAM. [Concomitant]
     Active Substance: CLONAZEPAM
     Dosage: UNK
     Dates: start: 20180416
  2. NORDETTE [Suspect]
     Active Substance: ETHINYL ESTRADIOL\LEVONORGESTREL
     Indication: CONTRACEPTION
     Dosage: 1 TABLET AT NIGHT
  3. LORAZEPAM. [Concomitant]
     Active Substance: LORAZEPAM
     Dosage: UNK
     Dates: start: 20180416
  4. ZOLPIDEM [Concomitant]
     Active Substance: ZOLPIDEM\ZOLPIDEM TARTRATE
     Dosage: UNK
     Dates: start: 20180416
  5. TOPIRAMATE. [Concomitant]
     Active Substance: TOPIRAMATE
     Dosage: UNK
     Dates: start: 20180416
  6. NORDETTE [Suspect]
     Active Substance: ETHINYL ESTRADIOL\LEVONORGESTREL
     Dosage: 2 TABLETS IN THE MORNING AND 1 TABLET IN THE EVENING
     Dates: start: 20180418

REACTIONS (4)
  - Nervous system disorder [Recovered/Resolved]
  - Intentional product misuse [Recovered/Resolved]
  - Drug dose omission [Recovered/Resolved]
  - Metrorrhagia [Not Recovered/Not Resolved]

NARRATIVE: CASE EVENT DATE: 20180416
